FAERS Safety Report 5388387-7 (Version None)
Quarter: 2007Q3

REPORT INFORMATION
  Report Type: 
  Country: None (occurrence: None)
  Receive Date: 20070716
  Receipt Date: 20070709
  Transmission Date: 20080115
  Serious: Yes (Death, Hospitalization)
  Sender: FDA-Public Use
  Company Number: HQWYE412115JAN07

PATIENT
  Sex: Male

DRUGS (12)
  1. TACROLIMUS [Suspect]
     Indication: PROPHYLAXIS AGAINST TRANSPLANT REJECTION
     Route: 048
     Dates: start: 20041026, end: 20041027
  2. TACROLIMUS [Suspect]
     Route: 048
     Dates: start: 20041028, end: 20041030
  3. TACROLIMUS [Suspect]
     Dosage: VARYING DOSE FROM 6 MG TO 3 MG DAILY
     Route: 048
     Dates: start: 20041031, end: 20060522
  4. TACROLIMUS [Suspect]
     Route: 048
     Dates: start: 20060523, end: 20061026
  5. TACROLIMUS [Suspect]
     Route: 048
     Dates: start: 20061027
  6. ZENAPAX [Concomitant]
     Indication: PROPHYLAXIS AGAINST TRANSPLANT REJECTION
     Dosage: 100 MG - ONE TIME DOSE
     Route: 065
     Dates: start: 20041026
  7. ZENAPAX [Concomitant]
     Dosage: 100 MG - ONE TIME DOSE
     Route: 065
     Dates: start: 20041110
  8. PREDNISONE [Concomitant]
     Indication: PROPHYLAXIS AGAINST TRANSPLANT REJECTION
     Dosage: DECREASING DOSE VARYING FROM 20MG DAILY TO 7.5 MG DAILY
     Route: 048
     Dates: start: 20041104, end: 20050515
  9. PREDNISONE [Concomitant]
     Route: 048
     Dates: start: 20050516
  10. MYCOPHENOLATE MOFETIL [Concomitant]
     Indication: PROPHYLAXIS AGAINST TRANSPLANT REJECTION
     Route: 048
     Dates: start: 20041026, end: 20041027
  11. MYCOPHENOLATE MOFETIL [Concomitant]
     Route: 048
     Dates: start: 20041028, end: 20041220
  12. MYCOPHENOLATE MOFETIL [Concomitant]
     Route: 048
     Dates: start: 20041221

REACTIONS (1)
  - DEATH [None]
